FAERS Safety Report 5117904-7 (Version None)
Quarter: 2006Q3

REPORT INFORMATION
  Report Type: 
  Country: None (occurrence: None)
  Receive Date: 20060929
  Receipt Date: 20060807
  Transmission Date: 20061208
  Serious: Yes (Hospitalization, Other)
  Sender: FDA-Public Use
  Company Number: TH-ABBOTT-06P-155-0339690-00

PATIENT
  Age: 35 Year
  Sex: Female
  Weight: 41 kg

DRUGS (2)
  1. KALETRA [Suspect]
     Indication: HIV TEST POSITIVE
     Dosage: 400/100MG TWICE DAILY
     Route: 048
  2. UNSPECIFIED MEDICATION [Concomitant]
     Indication: DRUG USE FOR UNKNOWN INDICATION

REACTIONS (6)
  - ANAEMIA [None]
  - CYTOMEGALOVIRUS CHORIORETINITIS [None]
  - CYTOMEGALOVIRUS COLITIS [None]
  - DEHYDRATION [None]
  - DIARRHOEA [None]
  - PULMONARY TUBERCULOSIS [None]
